FAERS Safety Report 4496982-2 (Version None)
Quarter: 2004Q3

REPORT INFORMATION
  Report Type: 
  Country: None (occurrence: None)
  Receive Date: 20040928
  Receipt Date: 20040720
  Transmission Date: 20050211
  Serious: No
  Sender: FDA-Public Use
  Company Number: 04P-163-0267667-00

PATIENT
  Age: 62 Year
  Sex: Female
  Weight: 64.8644 kg

DRUGS (7)
  1. HUMIRA [Suspect]
     Indication: RHEUMATOID ARTHRITIS
     Dosage: 40 MG , 1 IN 2 WK, SUBCUTANEOUS
     Route: 058
     Dates: start: 20040531, end: 20040608
  2. HUMIRA [Suspect]
     Indication: RHEUMATOID ARTHRITIS
     Dosage: 40 MG , 1 IN 2 WK, SUBCUTANEOUS
     Route: 058
     Dates: start: 20040621
  3. CELECOXIB [Concomitant]
  4. HYDROXYCHLOROQUINE PHOSPHATE [Concomitant]
  5. PANTOPRAZOLE [Concomitant]
  6. ATORVASTATIN CALCIUM [Concomitant]
  7. FEXOFENADINE HYDROCHLORIDE [Concomitant]

REACTIONS (3)
  - INJECTION SITE RASH [None]
  - INJECTION SITE STINGING [None]
  - VIRAL INFECTION [None]
